FAERS Safety Report 7097954-4 (Version None)
Quarter: 2010Q4

REPORT INFORMATION
  Report Type: 
  Country: None (occurrence: None)
  Receive Date: 20101112
  Receipt Date: 20101103
  Transmission Date: 20110411
  Serious: Yes (Hospitalization)
  Sender: FDA-Public Use
  Company Number: US-KINGPHARMUSA00001-K201001366

PATIENT
  Sex: Female
  Weight: 78.5 kg

DRUGS (1)
  1. EMBEDA [Suspect]
     Indication: PAIN
     Dosage: 20 MG, QD
     Route: 048
     Dates: start: 20101026, end: 20101031

REACTIONS (2)
  - DYSKINESIA [None]
  - FALL [None]
